FAERS Safety Report 6160698-7 (Version None)
Quarter: 2009Q2

REPORT INFORMATION
  Report Type: 
  Country: None (occurrence: None)
  Receive Date: 20090420
  Receipt Date: 20090417
  Transmission Date: 20091009
  Serious: Yes (Hospitalization)
  Sender: FDA-Public Use
  Company Number: CA-BRISTOL-MYERS SQUIBB COMPANY-14591895

PATIENT
  Age: 53 Year
  Sex: Female

DRUGS (8)
  1. AVAPRO [Suspect]
  2. METFORMIN HCL [Suspect]
  3. GLUCOBAY [Suspect]
  4. ACTOS [Suspect]
  5. DIAMICRON [Suspect]
  6. ASPIRIN [Suspect]
  7. LANTUS [Suspect]
     Route: 058
  8. LIPITOR [Suspect]

REACTIONS (1)
  - BREAST CANCER [None]
